FAERS Safety Report 20160642 (Version 1)
Quarter: 2021Q4

REPORT INFORMATION
  Report Type: Spontaneous
  Country: IN (occurrence: IN)
  Receive Date: 20211208
  Receipt Date: 20211208
  Transmission Date: 20220303
  Serious: Yes (Other)
  Sender: FDA-Public Use
  Company Number: IN-LUPIN PHARMACEUTICALS INC.-2021-23969

PATIENT
  Sex: Male

DRUGS (6)
  1. CLOBAZAM [Suspect]
     Active Substance: CLOBAZAM
     Indication: Seizure
     Dosage: UNK
     Route: 065
  2. CLOBAZAM [Suspect]
     Active Substance: CLOBAZAM
     Indication: Partial seizures
  3. TOPIRAMATE [Suspect]
     Active Substance: TOPIRAMATE
     Indication: Seizure
     Dosage: UNK
     Route: 065
  4. TOPIRAMATE [Suspect]
     Active Substance: TOPIRAMATE
     Indication: Partial seizures
  5. VALPROATE [Suspect]
     Active Substance: VALPROIC ACID
     Indication: Seizure
     Dosage: UNK
     Route: 065
  6. VALPROATE [Suspect]
     Active Substance: VALPROIC ACID
     Indication: Partial seizures

REACTIONS (1)
  - Drug resistance [Unknown]
